FAERS Safety Report 4817563-4 (Version None)
Quarter: 2005Q4

REPORT INFORMATION
  Report Type: 
  Country: None (occurrence: None)
  Receive Date: 20051031
  Receipt Date: 20051017
  Transmission Date: 20060501
  Serious: Yes (Other)
  Sender: FDA-Public Use
  Company Number: 2005P1000476

PATIENT
  Age: 77 Year
  Sex: Male

DRUGS (2)
  1. NICARDIPINE HCL [Suspect]
     Dosage: 3 MG
  2. FENTANYL [Concomitant]

REACTIONS (6)
  - HAEMODIALYSIS [None]
  - HYPOTENSION [None]
  - LYMPHADENOPATHY [None]
  - PARAGANGLION NEOPLASM [None]
  - PROCEDURAL COMPLICATION [None]
  - RENAL FAILURE ACUTE [None]
